FAERS Safety Report 6989114-X (Version None)
Quarter: 2010Q3

REPORT INFORMATION
  Report Type: 
  Country: None (occurrence: None)
  Receive Date: 20100916
  Receipt Date: 20091005
  Transmission Date: 20110219
  Serious: Yes (Other)
  Sender: FDA-Public Use
  Company Number: SE-PFIZER INC-2009264955

PATIENT
  Age: 50 Year
  Sex: Male

DRUGS (2)
  1. LYRICA [Suspect]
     Indication: GENERALISED ANXIETY DISORDER
     Dosage: 300 MG, 1X/DAY
     Dates: start: 20090801, end: 20090801
  2. LYRICA [Suspect]
     Dosage: 150 MG, 1X/DAY
     Dates: start: 20090801, end: 20090801

REACTIONS (2)
  - EPILEPSY [None]
  - SYNCOPE [None]
